FAERS Safety Report 4480286-8 (Version None)
Quarter: 2004Q3

REPORT INFORMATION
  Report Type: 
  Country: None (occurrence: None)
  Receive Date: 20040923
  Receipt Date: 20040702
  Transmission Date: 20050211
  Serious: No
  Sender: FDA-Public Use
  Company Number: USA040566781

PATIENT
  Age: 83 Year
  Sex: Female
  Weight: 45 kg

DRUGS (6)
  1. FORTEO [Suspect]
     Indication: OSTEOPOROSIS
     Dosage: 20 UG/1DAY
     Dates: start: 20040426, end: 20040601
  2. COUMADIN [Concomitant]
  3. TYLENOL [Concomitant]
  4. MULTIVITAMIN [Concomitant]
  5. CALCIUM [Concomitant]
  6. ACTONEL [Concomitant]

REACTIONS (7)
  - ARTHRALGIA [None]
  - BACK PAIN [None]
  - DIFFICULTY IN WALKING [None]
  - DIZZINESS [None]
  - INJECTION SITE ERYTHEMA [None]
  - INJECTION SITE HAEMORRHAGE [None]
  - TINNITUS [None]
